FAERS Safety Report 11873211 (Version 1)
Quarter: 2015Q4

REPORT INFORMATION
  Report Type: Report from Study
  Country: US (occurrence: US)
  Receive Date: 20151228
  Receipt Date: 20151228
  Transmission Date: 20160305
  Serious: No
  Sender: FDA-Public Use
  Company Number: US-THERATECHNOLOGIES, INC.-TH-2015-00107

PATIENT
  Age: 51 Year
  Sex: Male

DRUGS (2)
  1. EGRIFTA [Suspect]
     Active Substance: TESAMORELIN
     Indication: LIPODYSTROPHY ACQUIRED
     Dosage: 1 MILLIGRAM
     Route: 058
     Dates: start: 20151202
  2. EGRIFTA [Suspect]
     Active Substance: TESAMORELIN
     Dosage: 2 MILLIGRAM
     Route: 058

REACTIONS (2)
  - Paraesthesia [Unknown]
  - Pruritus generalised [None]

NARRATIVE: CASE EVENT DATE: 20151210
